FAERS Safety Report 6151795-0 (Version None)
Quarter: 2009Q2

REPORT INFORMATION
  Report Type: 
  Country: None (occurrence: None)
  Receive Date: 20090410
  Receipt Date: 20090330
  Transmission Date: 20091009
  Serious: Yes (Other)
  Sender: FDA-Public Use
  Company Number: US-AVENTIS-200912837US

PATIENT
  Sex: Male

DRUGS (2)
  1. ALLEGRA-D 12 HOUR [Suspect]
     Dosage: DOSE: UNK
  2. VALIUM [Suspect]
     Dosage: DOSE: UNK

REACTIONS (11)
  - ABDOMINAL PAIN [None]
  - AMNESIA [None]
  - BACK PAIN [None]
  - CONVULSION [None]
  - DEPRESSED LEVEL OF CONSCIOUSNESS [None]
  - HEADACHE [None]
  - HYPERTENSION [None]
  - NECK PAIN [None]
  - POSTICTAL STATE [None]
  - ROAD TRAFFIC ACCIDENT [None]
  - SOMNOLENCE [None]
